FAERS Safety Report 15998208 (Version 1)
Quarter: 2019Q1

REPORT INFORMATION
  Report Type: Spontaneous
  Country: IT (occurrence: IT)
  Receive Date: 20190223
  Receipt Date: 20190223
  Transmission Date: 20190418
  Serious: Yes (Death)
  Sender: FDA-Public Use
  Company Number: IT-ACCORD-108726

PATIENT
  Age: 63 Year
  Sex: Female
  Weight: 65 kg

DRUGS (1)
  1. CAPECITABINE. [Suspect]
     Active Substance: CAPECITABINE
     Indication: RECTAL CANCER
     Route: 048
     Dates: start: 20180710, end: 20180716

REACTIONS (6)
  - Diarrhoea [Fatal]
  - Rectal cancer [Fatal]
  - Febrile neutropenia [Fatal]
  - Renal failure [Fatal]
  - Stomatitis [Fatal]
  - Sepsis [Fatal]

NARRATIVE: CASE EVENT DATE: 20180717
